FAERS Safety Report 8271077-0 (Version None)
Quarter: 2012Q2

REPORT INFORMATION
  Report Type: 
  Country: None (occurrence: None)
  Receive Date: 20120410
  Receipt Date: 20120327
  Transmission Date: 20120825
  Serious: Yes (Other)
  Sender: FDA-Public Use
  Company Number: IE-ROCHE-CID000000001986343

PATIENT
  Age: 44 Year
  Sex: Male

DRUGS (2)
  1. TAMIFLU [Suspect]
     Indication: INFLUENZA
     Route: 048
     Dates: start: 20120308
  2. VIBRAMYCIN [Concomitant]
     Indication: INFLUENZA

REACTIONS (5)
  - RASH PAPULAR [None]
  - VISION BLURRED [None]
  - RASH PRURITIC [None]
  - OCULAR HYPERAEMIA [None]
  - MALAISE [None]
